FAERS Safety Report 7359168-X (Version None)
Quarter: 2011Q1

REPORT INFORMATION
  Report Type: 
  Country: None (occurrence: None)
  Receive Date: 20110317
  Receipt Date: 20110309
  Transmission Date: 20110831
  Serious: Yes (Hospitalization)
  Sender: FDA-Public Use
  Company Number: US-ASTRAZENECA-2011SE13153

PATIENT
  Sex: Female

DRUGS (4)
  1. NEXIUM [Suspect]
     Route: 048
  2. CRESTOR [Suspect]
     Indication: HYPERCHOLESTEROLAEMIA
     Route: 048
  3. VERAPAMIL EXTENDED-RELEASE [Concomitant]
  4. SYMBICORT [Suspect]
     Dosage: 160/4.5 INHALER 2 PUFFS, TWO TIMES A DAY
     Route: 055

REACTIONS (8)
  - ASTHMA [None]
  - INAPPROPRIATE SCHEDULE OF DRUG ADMINISTRATION [None]
  - PLEURISY [None]
  - RESPIRATORY TRACT INFLAMMATION [None]
  - BRONCHITIS [None]
  - WHEEZING [None]
  - PULMONARY FUNCTION TEST DECREASED [None]
  - RESPIRATORY TRACT INFECTION [None]
